FAERS Safety Report 8400888 (Version 2)
Quarter: 2013Q1

REPORT INFORMATION
  Report Type: Spontaneous
  Country: US (occurrence: US)
  Receive Date: 20120210
  Receipt Date: 20130219
  Transmission Date: 20140127
  Serious: No
  Sender: FDA-Public Use
  Company Number: US-BRISTOL-MYERS SQUIBB COMPANY-16252546

PATIENT
  Age: 50 Year
  Sex: Female
  Weight: 52.15 kg

DRUGS (2)
  1. ORENCIA FOR INJ [Suspect]
     Dosage: ORENCIA INJ 1ML SYRINGE?BULK LIST/LOT: 1277307/1F66403
     Route: 058
  2. PREDNISONE [Concomitant]

REACTIONS (4)
  - Pain [Unknown]
  - Erythema [Recovered/Resolved]
  - Injection site reaction [Recovered/Resolved]
  - Drug ineffective [Unknown]
